FAERS Safety Report 5236165-1 (Version None)
Quarter: 2007Q1

REPORT INFORMATION
  Report Type: 
  Country: None (occurrence: None)
  Receive Date: 20070212
  Receipt Date: 20070131
  Transmission Date: 20070707
  Serious: Yes (Hospitalization, Other)
  Sender: FDA-Public Use
  Company Number: FR-SHR-FR-2005-023450

PATIENT
  Age: 37 Year
  Sex: Female

DRUGS (3)
  1. BETASERON [Suspect]
     Indication: MULTIPLE SCLEROSIS
     Dosage: 8 MIU, 3X/WEEK
     Route: 058
     Dates: start: 20001110
  2. LIORESAL ^NOVARTIS^ [Concomitant]
     Route: 048
  3. LEVOTHYROXINE SODIUM [Concomitant]
     Indication: HORMONE REPLACEMENT THERAPY
     Route: 048
     Dates: start: 20050810

REACTIONS (2)
  - RENAL FAILURE ACUTE [None]
  - RETROPERITONEAL FIBROSIS [None]
